FAERS Safety Report 21597417 (Version 1)
Quarter: 2022Q4

REPORT INFORMATION
  Report Type: Spontaneous
  Country: US (occurrence: None)
  Receive Date: 20221114
  Receipt Date: 20221114
  Transmission Date: 20230113
  Serious: Yes (Other)
  Sender: FDA-Public Use
  Company Number: None

PATIENT
  Age: 61 Year
  Sex: Male
  Weight: 63.5 kg

DRUGS (13)
  1. NIVOLUMAB [Suspect]
     Active Substance: NIVOLUMAB
     Indication: Small cell lung cancer
     Dosage: OTHER FREQUENCY : Q28 DAYS;?
     Route: 042
     Dates: start: 20211210, end: 20221014
  2. RUCAPARIB [Suspect]
     Active Substance: RUCAPARIB
     Indication: Small cell lung cancer
     Dosage: FREQUENCY : TWICE A DAY;?
     Route: 048
     Dates: start: 20211210
  3. RUCAPARIB [Suspect]
     Active Substance: RUCAPARIB
  4. ALBUTEROL [Concomitant]
     Active Substance: ALBUTEROL
  5. CALCIUM CARBONATE [Concomitant]
     Active Substance: CALCIUM CARBONATE
  6. CHOLECALCIFEROL [Concomitant]
     Active Substance: CHOLECALCIFEROL
  7. FAMOTIDINE [Concomitant]
     Active Substance: FAMOTIDINE
  8. FLUTICASONE [Concomitant]
     Active Substance: FLUTICASONE
  9. LEVOTHYROXINE [Concomitant]
     Active Substance: LEVOTHYROXINE
  10. MAGNESIUM OXIDE [Concomitant]
     Active Substance: MAGNESIUM OXIDE
  11. SINGULAIR [Concomitant]
     Active Substance: MONTELUKAST SODIUM
  12. PRAVASTATIN [Concomitant]
     Active Substance: PRAVASTATIN
  13. SACCHAROMYCES [Concomitant]
     Active Substance: SACCHAROMYCES CEREVISIAE

REACTIONS (2)
  - Hyponatraemia [None]
  - Small cell lung cancer [None]

NARRATIVE: CASE EVENT DATE: 20221111
